FAERS Safety Report 7926181 (Version 3)
Quarter: 2013Q2

REPORT INFORMATION
  Report Type: Spontaneous
  Country: US (occurrence: US)
  Receive Date: 20110502
  Receipt Date: 20130515
  Transmission Date: 20140414
  Serious: Yes (Other)
  Sender: FDA-Public Use
  Company Number: US-ASTRAZENECA-2010SE48879

PATIENT
  Age: 672 Month
  Sex: Female

DRUGS (3)
  1. NEXIUM [Suspect]
     Route: 048
  2. PREDNISONE [Suspect]
     Route: 065
  3. STRONG ANTIBIOTICS [Concomitant]
     Indication: OESOPHAGEAL DISORDER

REACTIONS (18)
  - Rib fracture [Unknown]
  - Road traffic accident [Unknown]
  - Cardiac failure [Unknown]
  - Pericardial effusion [Unknown]
  - Anaemia [Unknown]
  - Pulmonary oedema [Unknown]
  - Oedema peripheral [Unknown]
  - Oesophageal pain [Unknown]
  - Oesophageal disorder [Unknown]
  - Pain [Unknown]
  - Atypical pneumonia [Unknown]
  - Gait disturbance [Unknown]
  - Asthenia [Unknown]
  - Loss of consciousness [Unknown]
  - Pneumonia [Unknown]
  - Malaise [Unknown]
  - Abdominal discomfort [Unknown]
  - Drug dose omission [Unknown]
